FAERS Safety Report 6899251-6 (Version None)
Quarter: 2010Q3

REPORT INFORMATION
  Report Type: 
  Country: None (occurrence: None)
  Receive Date: 20100802
  Receipt Date: 20080216
  Transmission Date: 20110219
  Serious: No
  Sender: FDA-Public Use
  Company Number: US-PFIZER INC-2007108942

PATIENT
  Sex: Male
  Weight: 65.77 kg

DRUGS (1)
  1. LYRICA [Suspect]
     Indication: HERPES ZOSTER

REACTIONS (1)
  - MUSCLE SPASMS [None]
